FAERS Safety Report 21649688 (Version 1)
Quarter: 2022Q4

REPORT INFORMATION
  Report Type: Spontaneous
  Country: GR (occurrence: GR)
  Receive Date: 20221128
  Receipt Date: 20221128
  Transmission Date: 20230113
  Serious: Yes (Other)
  Sender: FDA-Public Use
  Company Number: GR-ABBVIE-4215472

PATIENT
  Age: 82 Year
  Sex: Male

DRUGS (3)
  1. VENETOCLAX [Suspect]
     Active Substance: VENETOCLAX
     Indication: Acute monocytic leukaemia
     Route: 048
  2. VENETOCLAX [Suspect]
     Active Substance: VENETOCLAX
     Indication: Acute monocytic leukaemia
     Route: 048
     Dates: start: 202009
  3. AZACITIDINE [Concomitant]
     Active Substance: AZACITIDINE
     Indication: Acute monocytic leukaemia
     Dates: start: 202007

REACTIONS (4)
  - Pancytopenia [Unknown]
  - Infection [Unknown]
  - Toxicity to various agents [Unknown]
  - Respiratory tract infection [Unknown]
